FAERS Safety Report 22104921 (Version 1)
Quarter: 2023Q1

REPORT INFORMATION
  Report Type: Spontaneous
  Country: US (occurrence: US)
  Receive Date: 20230316
  Receipt Date: 20230316
  Transmission Date: 20230417
  Serious: Yes (Other)
  Sender: FDA-Public Use
  Company Number: US-GLAXOSMITHKLINE-US2022GSK116231

PATIENT
  Sex: Male

DRUGS (6)
  1. CARIPRAZINE HYDROCHLORIDE [Suspect]
     Active Substance: CARIPRAZINE HYDROCHLORIDE
     Indication: Bipolar I disorder
     Dosage: 4.5 MG, QD
  2. LITHIUM [Suspect]
     Active Substance: LITHIUM
     Indication: Bipolar I disorder
     Dosage: 1200 MG, QD
  3. QUETIAPINE [Concomitant]
     Active Substance: QUETIAPINE
     Indication: Bipolar I disorder
     Dosage: 50 MG, QHS
  4. QUETIAPINE [Concomitant]
     Active Substance: QUETIAPINE
     Indication: Sleep disorder
  5. LEVOTHYROXINE [Concomitant]
     Active Substance: LEVOTHYROXINE
     Indication: Hypothyroidism
     Dosage: 150 ?G, QD
  6. OMEPRAZOLE [Concomitant]
     Active Substance: OMEPRAZOLE
     Indication: Gastrooesophageal reflux disease
     Dosage: 20 MG, QD

REACTIONS (9)
  - Anterograde amnesia [Unknown]
  - Asphyxia [Unknown]
  - Disorientation [Unknown]
  - Treatment noncompliance [Unknown]
  - Gait disturbance [Unknown]
  - Parkinsonism [Unknown]
  - Suicide attempt [Unknown]
  - Confusional state [Recovered/Resolved]
  - Reduced facial expression [Unknown]

NARRATIVE: CASE EVENT DATE: 20201201
